FAERS Safety Report 10671634 (Version 1)
Quarter: 2014Q4

REPORT INFORMATION
  Report Type: Spontaneous
  Country: US (occurrence: None)
  Receive Date: 20141222
  Receipt Date: 20141222
  Transmission Date: 20150529
  Serious: No
  Sender: FDA-Public Use
  Company Number: None

PATIENT
  Age: 57 Year
  Sex: Male
  Weight: 72.58 kg

DRUGS (1)
  1. SUCCINYLCHOLINE [Suspect]
     Active Substance: SUCCINYLCHOLINE
     Dosage: INTO A VEIN
     Dates: start: 20141219

REACTIONS (3)
  - Pain [None]
  - Myalgia [None]
  - Mobility decreased [None]

NARRATIVE: CASE EVENT DATE: 20141219
